FAERS Safety Report 20039207 (Version 1)
Quarter: 2021Q4

REPORT INFORMATION
  Report Type: Report from Study
  Country: CA (occurrence: CA)
  Receive Date: 20211105
  Receipt Date: 20211105
  Transmission Date: 20220303
  Serious: Yes (Other)
  Sender: FDA-Public Use
  Company Number: CA-TAKEDA-CA202028180

PATIENT

DRUGS (2)
  1. HUMAN IMMUNOGLOBULIN G [Suspect]
     Active Substance: HUMAN IMMUNOGLOBULIN G
     Indication: Primary immunodeficiency syndrome
     Dosage: 8 GRAM, 1X/WEEK
     Route: 058
     Dates: start: 20180816
  2. HIZENTRA [Concomitant]
     Active Substance: HUMAN IMMUNOGLOBULIN G
     Indication: Product used for unknown indication
     Dosage: 8G/WEEK PUMP, OVER SINCE MONTHS
     Route: 065
     Dates: start: 20180101

REACTIONS (8)
  - Eye infection [Recovering/Resolving]
  - Infection [Not Recovered/Not Resolved]
  - Product storage error [Unknown]
  - Liquid product physical issue [Unknown]
  - Headache [Not Recovered/Not Resolved]
  - Malaise [Not Recovered/Not Resolved]
  - Fatigue [Not Recovered/Not Resolved]
  - Condition aggravated [Unknown]

NARRATIVE: CASE EVENT DATE: 20211001
